FAERS Safety Report 7491344-8 (Version None)
Quarter: 2011Q2

REPORT INFORMATION
  Report Type: 
  Country: None (occurrence: None)
  Receive Date: 20110519
  Receipt Date: 20110505
  Transmission Date: 20111010
  Serious: Yes (Hospitalization)
  Sender: FDA-Public Use
  Company Number: DE-MYLANLABS-2009S1004855

PATIENT
  Age: 69 Year
  Sex: Female
  Weight: 62 kg

DRUGS (5)
  1. ACETYL SALICYLIC ACID USP BAT [Concomitant]
     Indication: PERIPHERAL ARTERIAL OCCLUSIVE DISEASE
     Route: 048
  2. DOXAZOSIN MESYLATE [Suspect]
     Route: 048
  3. RAMIPRIL [Interacting]
     Indication: HYPERTENSION
     Route: 048
  4. METOPROLOL SUCCINATE [Interacting]
     Indication: HYPERTENSION
     Dosage: 95-0-47.5 MG
     Route: 048
     Dates: end: 20090101
  5. AMLODIPINE BESYLATE AND VALSARTAN [Interacting]
     Indication: HYPERTENSION
     Dosage: 1 FILMTABLETTE ENTHALT AMLODIPIN 10 MG UND VALSARTAN 160 MG
     Route: 048

REACTIONS (3)
  - SINUS BRADYCARDIA [None]
  - DRUG INTERACTION [None]
  - SYNCOPE [None]
